FAERS Safety Report 25988342 (Version 1)
Quarter: 2025Q4

REPORT INFORMATION
  Report Type: Other
  Country: EU (occurrence: EU)
  Receive Date: 20251103
  Receipt Date: 20251103
  Transmission Date: 20260118
  Serious: Yes (Hospitalization)
  Sender: ZYDUS PHARM
  Company Number: None

PATIENT

DRUGS (3)
  1. SERTRALINE [Suspect]
     Active Substance: SERTRALINE HYDROCHLORIDE
     Indication: Depression
     Dosage: 50 MILLIGRAM, QD
     Route: 048
     Dates: start: 20250915, end: 20250922
  2. ENOXAPARIN SODIUM [Suspect]
     Active Substance: ENOXAPARIN SODIUM
     Indication: Thrombosis prophylaxis
     Dosage: 12000 INTERNATIONAL UNIT, QD
     Route: 058
     Dates: start: 20250915, end: 20250922
  3. WARFARIN [Suspect]
     Active Substance: WARFARIN
     Indication: Thrombosis prophylaxis
     Dosage: 5 MILLIGRAM, QD
     Route: 048
     Dates: start: 20250915, end: 20250922

REACTIONS (1)
  - Haematoma muscle [Recovering/Resolving]

NARRATIVE: CASE EVENT DATE: 20250922
